FAERS Safety Report 5538141-8 (Version None)
Quarter: 2007Q4

REPORT INFORMATION
  Report Type: 
  Country: None (occurrence: None)
  Receive Date: 20071123
  Receipt Date: 20070126
  Transmission Date: 20080405
  Serious: Yes (Other)
  Sender: FDA-Public Use
  Company Number: US-JNJFOC-20061106522

PATIENT
  Sex: Male

DRUGS (2)
  1. LEVAQUIN [Suspect]
     Indication: PHARYNGOLARYNGEAL PAIN
     Dosage: 500 MG
     Dates: start: 20061102, end: 20061103
  2. LEVAQUIN [Suspect]
     Indication: UNEVALUABLE EVENT
     Dosage: 500 MG
     Dates: start: 20061102, end: 20061103

REACTIONS (3)
  - CONFUSIONAL STATE [None]
  - PARAESTHESIA [None]
  - SUICIDE ATTEMPT [None]
